FAERS Safety Report 13342786 (Version 2)
Quarter: 2017Q1

REPORT INFORMATION
  Report Type: Spontaneous
  Country: US (occurrence: US)
  Receive Date: 20170316
  Receipt Date: 20170324
  Transmission Date: 20170428
  Serious: Yes (Hospitalization, Other)
  Sender: FDA-Public Use
  Company Number: US-SAOL THERAPEUTICS-2017SAO00219

PATIENT
  Age: 10 Year
  Sex: Female
  Weight: 26 kg

DRUGS (4)
  1. BACLOFEN. [Suspect]
     Active Substance: BACLOFEN
     Indication: MUSCLE SPASTICITY
     Dosage: 887.3 ?G, \DAY
     Route: 037
     Dates: start: 20160601
  2. DIAZEPAM. [Concomitant]
     Active Substance: DIAZEPAM
     Dosage: UNK, AS NEEDED
  3. MIRALAX [Concomitant]
     Active Substance: POLYETHYLENE GLYCOL 3350
  4. CLONIDINE. [Concomitant]
     Active Substance: CLONIDINE
     Dosage: UNK, AS NEEDED

REACTIONS (5)
  - Overdose [None]
  - Mental status changes [Unknown]
  - Somnolence [Recovering/Resolving]
  - Heart rate decreased [Unknown]
  - Fatigue [Recovering/Resolving]

NARRATIVE: CASE EVENT DATE: 201610
